FAERS Safety Report 16320981 (Version 2)
Quarter: 2019Q2

REPORT INFORMATION
  Report Type: Spontaneous
  Country: US (occurrence: US)
  Receive Date: 20190516
  Receipt Date: 20190606
  Transmission Date: 20190711
  Serious: Yes (Death)
  Sender: FDA-Public Use
  Company Number: US-PFIZER INC-2019210384

PATIENT
  Age: 55 Year
  Sex: Female
  Weight: 60.33 kg

DRUGS (1)
  1. CAMPTOSAR [Suspect]
     Active Substance: IRINOTECAN HYDROCHLORIDE
     Indication: BRAIN NEOPLASM
     Dosage: 200 MG, CYCLIC, EVERY 14 DAYS FOR 6 CYCLES
     Route: 042
     Dates: start: 20180801, end: 20180905

REACTIONS (3)
  - Off label use [Unknown]
  - Neoplasm progression [Fatal]
  - Product use in unapproved indication [Unknown]

NARRATIVE: CASE EVENT DATE: 20180801
